FAERS Safety Report 8142738-9 (Version None)
Quarter: 2012Q1

REPORT INFORMATION
  Report Type: 
  Country: None (occurrence: None)
  Receive Date: 20120216
  Receipt Date: 20120207
  Transmission Date: 20120608
  Serious: Yes (Other)
  Sender: FDA-Public Use
  Company Number: US-ASTRAZENECA-2012SE08480

PATIENT
  Age: 73 Year
  Sex: Female

DRUGS (2)
  1. SYMBICORT [Suspect]
     Route: 055
  2. FLEXPEN INSULIN [Concomitant]

REACTIONS (3)
  - DIABETES MELLITUS [None]
  - NEOPLASM MALIGNANT [None]
  - DIVERTICULITIS [None]
